FAERS Safety Report 11226334 (Version 1)
Quarter: 2015Q2

REPORT INFORMATION
  Report Type: Other
  Country: GB (occurrence: GB)
  Receive Date: 20150629
  Receipt Date: 20150629
  Transmission Date: 20150821
  Serious: Yes (Other)
  Sender: FDA-Public Use
  Company Number: GB-MYLANLABS-2015M1020479

PATIENT

DRUGS (12)
  1. LANSOPRAZOLE. [Interacting]
     Active Substance: LANSOPRAZOLE
     Dosage: UNK
  2. ATENOLOL. [Interacting]
     Active Substance: ATENOLOL
     Dosage: UNK
  3. SUKKARTO [Interacting]
     Active Substance: METFORMIN HYDROCHLORIDE
     Dosage: UNK
  4. LOSARTAN [Interacting]
     Active Substance: LOSARTAN
     Dosage: UNK
  5. CANAGLIFLOZIN [Suspect]
     Active Substance: CANAGLIFLOZIN
     Indication: TYPE 2 DIABETES MELLITUS
     Dosage: 100 MG, UNK
     Route: 048
     Dates: start: 20150508, end: 20150604
  6. FINASTERIDE. [Interacting]
     Active Substance: FINASTERIDE
     Dosage: UNK
  7. APIXABAN [Interacting]
     Active Substance: APIXABAN
     Dosage: UNK
  8. DOXAZOSIN [Interacting]
     Active Substance: DOXAZOSIN\DOXAZOSIN MESYLATE
     Dosage: UNK
  9. LOPERAMIDE [Interacting]
     Active Substance: LOPERAMIDE
     Dosage: UNK
  10. SIMVASTATIN. [Interacting]
     Active Substance: SIMVASTATIN
     Dosage: UNK
  11. BENDROFLUAZIDE [Interacting]
     Active Substance: BENDROFLUMETHIAZIDE
     Dosage: UNK
  12. CLOPIDOGREL [Concomitant]
     Active Substance: CLOPIDOGREL BISULFATE
     Dosage: UNK
     Dates: end: 20150528

REACTIONS (7)
  - Blood glucose increased [Not Recovered/Not Resolved]
  - Diabetes mellitus inadequate control [Not Recovered/Not Resolved]
  - Amnesia [Not Recovered/Not Resolved]
  - Fasciitis [Not Recovered/Not Resolved]
  - Drug interaction [Unknown]
  - Muscle spasms [Not Recovered/Not Resolved]
  - Confusional state [Not Recovered/Not Resolved]

NARRATIVE: CASE EVENT DATE: 20150521
